FAERS Safety Report 4302081-2 (Version None)
Quarter: 2004Q1

REPORT INFORMATION
  Report Type: 
  Country: None (occurrence: None)
  Receive Date: 20040126
  Receipt Date: 20030910
  Transmission Date: 20041129
  Serious: No
  Sender: FDA-Public Use
  Company Number: US_030997495

PATIENT
  Age: 10 Year
  Sex: Male
  Weight: 32 kg

DRUGS (2)
  1. STRATTERA [Suspect]
     Dosage: 18 MG/DAY
  2. DEXTRO AMPHETAMINE SULFATE TAB [Concomitant]

REACTIONS (2)
  - RASH PRURITIC [None]
  - SWELLING FACE [None]
